FAERS Safety Report 14182217 (Version 1)
Quarter: 2017Q4

REPORT INFORMATION
  Report Type: Spontaneous
  Country: US (occurrence: US)
  Receive Date: 20171113
  Receipt Date: 20171113
  Transmission Date: 20180321
  Serious: Yes (Hospitalization, Other)
  Sender: FDA-Public Use
  Company Number: US-WEST-WARD PHARMACEUTICALS CORP.-US-H14001-17-04291

PATIENT
  Age: 48 Year
  Sex: Male

DRUGS (2)
  1. PREDNISONE. [Suspect]
     Active Substance: PREDNISONE
     Indication: IMMUNOSUPPRESSANT DRUG THERAPY
     Dosage: HIGH-DOSE
     Route: 065
  2. TACROLIMUS. [Suspect]
     Active Substance: TACROLIMUS
     Indication: IMMUNOSUPPRESSANT DRUG THERAPY
     Dosage: HIGH-DOSE
     Route: 065

REACTIONS (6)
  - Central nervous system infection [Recovered/Resolved]
  - Pneumonia bacterial [Recovered/Resolved]
  - Nocardiosis [Recovered/Resolved]
  - Orbital infection [Recovered/Resolved]
  - Sepsis [Recovered/Resolved]
  - Abscess [Recovered/Resolved]
